FAERS Safety Report 11651880 (Version 1)
Quarter: 2015Q4

REPORT INFORMATION
  Report Type: Spontaneous
  Country: US (occurrence: US)
  Receive Date: 20151022
  Receipt Date: 20151022
  Transmission Date: 20160304
  Serious: Yes (Other)
  Sender: FDA-Public Use
  Company Number: US-BAYER-2015-444040

PATIENT
  Age: 79 Year
  Sex: Female
  Weight: 57.6 kg

DRUGS (2)
  1. VITAMIN B12 [Concomitant]
     Active Substance: CYANOCOBALAMIN
  2. ALEVE [Suspect]
     Active Substance: NAPROXEN SODIUM
     Indication: PAIN
     Dosage: EXCEEDED 3 CAPLETS IN A 24-HOUR PERIOD, PRN
     Route: 048

REACTIONS (5)
  - Product use issue [None]
  - Dyspepsia [Recovered/Resolved]
  - Cardiac flutter [Recovered/Resolved]
  - Dizziness [Recovered/Resolved]
  - Flatulence [Recovered/Resolved]
